FAERS Safety Report 12974177 (Version 1)
Quarter: 2016Q4

REPORT INFORMATION
  Report Type: Spontaneous
  Country: US (occurrence: US)
  Receive Date: 20161125
  Receipt Date: 20161125
  Transmission Date: 20170207
  Serious: Yes (Other)
  Sender: FDA-Public Use
  Company Number: US-ASTRAZENECA-2016SF23295

PATIENT
  Age: 45 Year
  Sex: Female
  Weight: 48.5 kg

DRUGS (5)
  1. SEROQUEL [Suspect]
     Active Substance: QUETIAPINE FUMARATE
     Indication: SLEEP DISORDER
     Route: 048
     Dates: start: 2010, end: 2012
  2. SEROQUEL [Suspect]
     Active Substance: QUETIAPINE FUMARATE
     Indication: SLEEP DISORDER
     Dosage: GENERIC SEROQUEL, 50 MG AT NIGHT
     Route: 048
     Dates: start: 2012, end: 2014
  3. DULOXETINE. [Concomitant]
     Active Substance: DULOXETINE
     Indication: DEPRESSION
     Route: 048
     Dates: start: 2015
  4. AMANTADINE [Concomitant]
     Active Substance: AMANTADINE
     Indication: MOVEMENT DISORDER
     Route: 048
     Dates: start: 2015
  5. CLONAZEPAM. [Concomitant]
     Active Substance: CLONAZEPAM
     Indication: MUSCLE RELAXANT THERAPY
     Route: 048
     Dates: start: 2015

REACTIONS (13)
  - Muscle spasms [Unknown]
  - Tremor [Unknown]
  - Off label use [Unknown]
  - Nervousness [Unknown]
  - Weight increased [Unknown]
  - Restless legs syndrome [Unknown]
  - Seizure [Unknown]
  - Muscle disorder [Unknown]
  - Product use issue [Unknown]
  - Cerebrovascular accident [Unknown]
  - Eye disorder [Unknown]
  - Foot deformity [Unknown]
  - Dystonia [Unknown]

NARRATIVE: CASE EVENT DATE: 2010
